FAERS Safety Report 7023300-8 (Version None)
Quarter: 2010Q3

REPORT INFORMATION
  Report Type: 
  Country: None (occurrence: None)
  Receive Date: 20100930
  Receipt Date: 20100922
  Transmission Date: 20110219
  Serious: Yes (Hospitalization)
  Sender: FDA-Public Use
  Company Number: BR-AMGEN-QUU441374

PATIENT
  Age: 63 Year
  Sex: Female

DRUGS (3)
  1. ENBREL [Suspect]
     Indication: PSORIATIC ARTHROPATHY
     Route: 058
     Dates: start: 20080501, end: 20100901
  2. PREDNISONE [Concomitant]
     Dosage: UNSPECIFIED
  3. METHOTREXATE [Concomitant]
     Indication: PSORIATIC ARTHROPATHY
     Dosage: UNSPECIFIED

REACTIONS (4)
  - CONDITION AGGRAVATED [None]
  - IDIOPATHIC THROMBOCYTOPENIC PURPURA [None]
  - MENINGOCOCCAL BACTERAEMIA [None]
  - PYREXIA [None]
